FAERS Safety Report 7482927-X (Version None)
Quarter: 2011Q2

REPORT INFORMATION
  Report Type: 
  Country: None (occurrence: None)
  Receive Date: 20110516
  Receipt Date: 20110310
  Transmission Date: 20111010
  Serious: No
  Sender: FDA-Public Use
  Company Number: US-BAYER-2011-023577

PATIENT
  Age: 84 Year
  Sex: Female
  Weight: 59 kg

DRUGS (9)
  1. COENZYME Q10 [Concomitant]
  2. MULTI-VITAMINS [Concomitant]
  3. LIPOIC ACID [Concomitant]
  4. DIAZIDE [Concomitant]
  5. METOPROLOL SUCCINATE [Concomitant]
  6. ALEVE (CAPLET) [Suspect]
     Indication: ANALGESIC THERAPY
     Dosage: 220 MG, UNK
     Route: 048
     Dates: start: 20110201, end: 20110309
  7. LOVAZA [Concomitant]
  8. LUTEIN [Concomitant]
  9. CHOLINE [Concomitant]

REACTIONS (1)
  - NO ADVERSE EVENT [None]
